FAERS Safety Report 8392576-7 (Version None)
Quarter: 2012Q2

REPORT INFORMATION
  Report Type: 
  Country: None (occurrence: None)
  Receive Date: 20120529
  Receipt Date: 20120521
  Transmission Date: 20120825
  Serious: Yes (Other)
  Sender: FDA-Public Use
  Company Number: PL-JNJFOC-20120519693

PATIENT
  Sex: Male

DRUGS (2)
  1. ZYRTEC [Suspect]
     Route: 065
  2. ZYRTEC [Suspect]
     Indication: RHINITIS ALLERGIC
     Dosage: HAD BEEN TAKING SINCE 10 YEARS DURING SPRING
     Route: 065

REACTIONS (1)
  - THROMBOCYTOPENIA [None]
